FAERS Safety Report 15499526 (Version 1)
Quarter: 2018Q4

REPORT INFORMATION
  Report Type: Spontaneous
  Country: US (occurrence: US)
  Receive Date: 20181007
  Receipt Date: 20181007
  Transmission Date: 20190205
  Serious: Yes (Other)
  Sender: FDA-Public Use
  Company Number: None

PATIENT
  Age: 67 Year
  Sex: Male
  Weight: 112.5 kg

DRUGS (22)
  1. LISINOPRIL 10 MG 1- Q.D [Concomitant]
  2. CLOBETASOL PROPIONATE TOPICAL SOL .05% PRN FOR SCALP [Concomitant]
  3. MUPIROCIN 2% OINTMENT PRN [Concomitant]
  4. PRAVASTATIN 40 MG 1- Q.D. [Concomitant]
  5. LISINOPRIL 10 MG [Suspect]
     Active Substance: LISINOPRIL
     Indication: HYPERTENSION
     Dosage: ?          QUANTITY:1 TABLET(S);?
     Route: 048
  6. CELEBREX 200 MG 1-2 PRN [Concomitant]
  7. MULTI-VITAMIN, CENTRUM SILVER ADULTS 50+ 1- Q.D. IN MORNING [Concomitant]
  8. BUSPIRONE 10 MG ? TABLET BID [Concomitant]
  9. NASACORT AQ 2 PUFFS/NOSTRIL 1- Q.D [Concomitant]
  10. NEILMED NOSE WASH 1 PACKET 1- Q.D [Concomitant]
  11. PROZAC CAPS 20 MG 1- Q.D [Concomitant]
  12. QUNOL, COQ -10 100 MG 1- Q.D [Concomitant]
  13. CALTRATE (600MG/800 IU D3) 1 TABLET EVERY OTHER DAY [Concomitant]
  14. CIALIS 5 MG 1 - Q.D [Concomitant]
  15. CYMBALTA 1_Q.D [Concomitant]
  16. FLAX SEED OIL 1300 MG B.I.D [Concomitant]
  17. PROVIGIL 200 MG 2-3, Q.D. [Concomitant]
  18. BACTRIM 800/160 PRN [Concomitant]
  19. MYRBETRIQ 25 MG 1- Q.D [Concomitant]
  20. VITAMIN D? 5000 UNITS 1-PER WEEK [Concomitant]
  21. LORAZEPAM 0.5 MG PRN [Concomitant]
  22. RAPAFLO 8 MG 1- Q.D [Concomitant]

REACTIONS (1)
  - Drug ineffective [None]

NARRATIVE: CASE EVENT DATE: 20181004
